FAERS Safety Report 4421388-1 (Version None)
Quarter: 2004Q3

REPORT INFORMATION
  Report Type: 
  Country: None (occurrence: None)
  Receive Date: 20040804
  Receipt Date: 20040722
  Transmission Date: 20050211
  Serious: Yes (Death, Life-Threatening)
  Sender: FDA-Public Use
  Company Number: 2004JP001026

PATIENT
  Age: 18 Year
  Sex: Female
  Weight: 60 kg

DRUGS (2)
  1. PROGRAF [Suspect]
     Indication: LIVER TRANSPLANT
     Dosage: 2.00 MG, BID, ORAL
     Route: 048
     Dates: start: 19990725, end: 20040226
  2. PREDNISOLONE [Suspect]
     Dosage: 5.00 MG, UID/QD, ORAL
     Route: 048
     Dates: start: 19990725, end: 20040226

REACTIONS (6)
  - BRAIN DEATH [None]
  - BREAST CANCER FEMALE [None]
  - BREAST CANCER STAGE I [None]
  - OESTROGEN RECEPTOR ASSAY POSITIVE [None]
  - PROGESTERONE RECEPTOR ASSAY POSITIVE [None]
  - SEPSIS [None]
